FAERS Safety Report 5388626-2 (Version None)
Quarter: 2007Q3

REPORT INFORMATION
  Report Type: 
  Country: None (occurrence: None)
  Receive Date: 20070716
  Receipt Date: 20070711
  Transmission Date: 20080115
  Serious: Yes (Other)
  Sender: FDA-Public Use
  Company Number: ES-ROXANE LABORATORIES, INC-2007-BP-17130RO

PATIENT
  Age: 27 Year
  Sex: Female

DRUGS (3)
  1. LIDOCAINE [Suspect]
     Indication: EPIDURAL ANAESTHESIA
     Route: 037
  2. BUPIVACAINE [Suspect]
     Indication: EPIDURAL ANAESTHESIA
     Route: 037
  3. FENTANYL [Suspect]
     Indication: EPIDURAL ANAESTHESIA
     Route: 037

REACTIONS (2)
  - HORNER'S SYNDROME [None]
  - TRIGEMINAL NERVE DISORDER [None]
